FAERS Safety Report 8041409-7 (Version None)
Quarter: 2012Q1

REPORT INFORMATION
  Report Type: 
  Country: None (occurrence: None)
  Receive Date: 20120112
  Receipt Date: 20120105
  Transmission Date: 20120608
  Serious: Yes (Hospitalization)
  Sender: FDA-Public Use
  Company Number: US-BAYER-2011-044944

PATIENT
  Age: 22 Year
  Sex: Female
  Weight: 104 kg

DRUGS (2)
  1. DROSPIRENONE AND ETHINYL ESTRADIOL [Suspect]
     Dosage: UNK
     Route: 048
     Dates: start: 20080701, end: 20090601
  2. YASMIN [Suspect]
     Dosage: UNK
     Route: 048
     Dates: start: 20070901, end: 20080601

REACTIONS (7)
  - CHOLECYSTITIS CHRONIC [None]
  - PANCREATITIS [None]
  - VOMITING [None]
  - ABDOMINAL PAIN [None]
  - CHOLELITHIASIS [None]
  - NAUSEA [None]
  - PAIN [None]
